FAERS Safety Report 12370291 (Version 1)
Quarter: 2016Q2

REPORT INFORMATION
  Report Type: Spontaneous
  Country: FR (occurrence: FR)
  Receive Date: 20160516
  Receipt Date: 20160516
  Transmission Date: 20160815
  Serious: Yes (Life-Threatening, Hospitalization, Other)
  Sender: FDA-Public Use
  Company Number: FR-ASTRAZENECA-2016SE51633

PATIENT
  Age: 2779 Week
  Sex: Male

DRUGS (4)
  1. XEROQUEL [Suspect]
     Active Substance: QUETIAPINE FUMARATE
     Indication: SCHIZOPHRENIA
     Route: 048
     Dates: end: 20160423
  2. CLOZAPINE. [Suspect]
     Active Substance: CLOZAPINE
     Route: 048
     Dates: end: 20160423
  3. ABILIFY [Suspect]
     Active Substance: ARIPIPRAZOLE
     Route: 048
     Dates: end: 20160423
  4. CLOZAPINE. [Suspect]
     Active Substance: CLOZAPINE
     Route: 048
     Dates: end: 20160423

REACTIONS (12)
  - Pneumonia aspiration [Unknown]
  - Leukocytosis [Unknown]
  - Blood creatine phosphokinase increased [Recovered/Resolved]
  - Extrapyramidal disorder [Recovered/Resolved]
  - Delirium [Recovered/Resolved]
  - Salivary hypersecretion [Recovered/Resolved]
  - Respiratory failure [Unknown]
  - Neurological decompensation [Unknown]
  - Overdose [Unknown]
  - Hyperthermia [Recovered/Resolved]
  - Catatonia [Recovered/Resolved]
  - Psychomotor retardation [Recovered/Resolved]

NARRATIVE: CASE EVENT DATE: 20160423
